FAERS Safety Report 18982396 (Version 10)
Quarter: 2023Q1

REPORT INFORMATION
  Report Type: Report from Study
  Country: US (occurrence: US)
  Receive Date: 20210308
  Receipt Date: 20230317
  Transmission Date: 20230418
  Serious: Yes (Other)
  Sender: FDA-Public Use
  Company Number: NVSC2021US047204

PATIENT
  Sex: Female

DRUGS (1)
  1. KESIMPTA [Suspect]
     Active Substance: OFATUMUMAB
     Indication: Relapsing-remitting multiple sclerosis
     Dosage: 20 MG, QMO
     Route: 058
     Dates: start: 20210113

REACTIONS (8)
  - Multiple sclerosis relapse [Unknown]
  - Arthralgia [Unknown]
  - Pain [Unknown]
  - Tremor [Unknown]
  - Migraine [Unknown]
  - Stress [Not Recovered/Not Resolved]
  - Staphylococcal infection [Recovering/Resolving]
  - Injection site bruising [Recovering/Resolving]
